FAERS Safety Report 6180377-X (Version None)
Quarter: 2009Q2

REPORT INFORMATION
  Report Type: 
  Country: None (occurrence: None)
  Receive Date: 20090506
  Receipt Date: 20090423
  Transmission Date: 20091009
  Serious: Yes (Hospitalization, Other)
  Sender: FDA-Public Use
  Company Number: DK-PFIZER INC-2009202443

PATIENT

DRUGS (10)
  1. DOXAZOSIN MESYLATE [Suspect]
     Dosage: UNK
  2. LISINOPRIL [Suspect]
     Dosage: UNK
  3. SAXAGLIPTIN [Suspect]
     Indication: TYPE 2 DIABETES MELLITUS
     Dosage: 2.5 MG, UNK
     Route: 048
  4. FOSINORM [Suspect]
     Dosage: UNK
  5. PLACEBO [Suspect]
     Indication: TYPE 2 DIABETES MELLITUS
     Dosage: UNK
     Route: 048
  6. NEBILET [Suspect]
     Dosage: UNK
  7. TORSEMIDE [Suspect]
     Dosage: UNK
  8. CARMEN [Suspect]
     Dosage: UNK
  9. ASPIRIN [Concomitant]
     Dosage: 100
  10. INSUMAN COMB 25 [Concomitant]
     Dosage: UNK

REACTIONS (5)
  - ABDOMINAL PAIN UPPER [None]
  - DIZZINESS [None]
  - LOSS OF CONSCIOUSNESS [None]
  - ORTHOSTATIC HYPOTENSION [None]
  - PNEUMONIA [None]
